FAERS Safety Report 8881901 (Version 1)
Quarter: 2012Q4

REPORT INFORMATION
  Report Type: 
  Country: US (occurrence: US)
  Receive Date: 20121101
  Receipt Date: 20121101
  Transmission Date: 20130627
  Serious: No
  Sender: FDA-Public Use
  Company Number: US-PFIZER INC-2012269296

PATIENT
  Age: 53 Year
  Sex: Female
  Weight: 104 kg

DRUGS (3)
  1. NEURONTIN [Suspect]
     Indication: FIBROMYALGIA
     Dosage: 300 mg, 2x/day
     Route: 048
     Dates: end: 201207
  2. METFORMIN [Concomitant]
     Indication: DIABETES
     Dosage: UNK
  3. CRESTOR [Concomitant]
     Indication: HIGH CHOLESTEROL
     Dosage: UNK

REACTIONS (3)
  - Off label use [Not Recovered/Not Resolved]
  - Pain [Not Recovered/Not Resolved]
  - Malaise [Not Recovered/Not Resolved]
